FAERS Safety Report 10966385 (Version 2)
Quarter: 2015Q2

REPORT INFORMATION
  Report Type: Spontaneous
  Country: BA (occurrence: BA)
  Receive Date: 20150330
  Receipt Date: 20150417
  Transmission Date: 20150821
  Serious: Yes (Other)
  Sender: FDA-Public Use
  Company Number: BA-ROCHE-1557212

PATIENT
  Sex: Female

DRUGS (3)
  1. NOLVADEX [Concomitant]
     Active Substance: TAMOXIFEN CITRATE
  2. DOCETAXEL. [Concomitant]
     Active Substance: DOCETAXEL
     Indication: BREAST CANCER
     Route: 049
     Dates: start: 201408
  3. HERCEPTIN [Suspect]
     Active Substance: TRASTUZUMAB
     Indication: HER-2 POSITIVE BREAST CANCER
     Route: 042

REACTIONS (1)
  - Atrioventricular block second degree [Unknown]
